FAERS Safety Report 9507949 (Version 2)
Quarter: 2013Q3

REPORT INFORMATION
  Report Type: Spontaneous
  Country: JP (occurrence: JP)
  Receive Date: 20130909
  Receipt Date: 20130909
  Transmission Date: 20140515
  Serious: Yes (Other)
  Sender: FDA-Public Use
  Company Number: JP-PFIZER INC-2013161398

PATIENT
  Age: 63 Year
  Sex: Female

DRUGS (1)
  1. LYRICA [Suspect]
     Indication: PAIN
     Dosage: 75 MG IN THE MORNING AND 150 MG AT NIGHT
     Route: 048
     Dates: start: 201108, end: 2012

REACTIONS (7)
  - Cataract [Unknown]
  - Visual acuity reduced [Recovered/Resolved]
  - Impaired driving ability [Unknown]
  - Diplopia [Not Recovered/Not Resolved]
  - Vision blurred [Recovered/Resolved]
  - Abnormal sensation in eye [Unknown]
  - Intentional drug misuse [Unknown]
